FAERS Safety Report 15677287 (Version 1)
Quarter: 2018Q4

REPORT INFORMATION
  Report Type: Report from Study
  Country: ES (occurrence: ES)
  Receive Date: 20181130
  Receipt Date: 20181130
  Transmission Date: 20190205
  Serious: Yes (Hospitalization, Other)
  Sender: FDA-Public Use
  Company Number: ES-TAKEDA-2018TEU006824

PATIENT
  Age: 79 Year
  Sex: Male

DRUGS (6)
  1. TROMALYT [Concomitant]
     Active Substance: ASPIRIN
     Indication: ISCHAEMIC CARDIOMYOPATHY
     Dosage: 150 MG, QD
     Route: 048
  2. COLCHICINE. [Suspect]
     Active Substance: COLCHICINE
     Indication: HYPERURICAEMIA
     Dosage: 1 MG, QD
     Route: 048
     Dates: start: 20100212, end: 20180309
  3. BENICAR [Interacting]
     Active Substance: OLMESARTAN MEDOXOMIL
     Indication: HYPERTENSION
     Dosage: 10 MG, QD
     Route: 048
     Dates: start: 20170919, end: 20180310
  4. MANIDIPINE [Interacting]
     Active Substance: MANIDIPINE
     Indication: HYPERURICAEMIA
     Dosage: 5 MG, QD
     Route: 048
     Dates: start: 20151119, end: 20180310
  5. RANEXA [Interacting]
     Active Substance: RANOLAZINE
     Indication: ISCHAEMIC CARDIOMYOPATHY
     Dosage: 1 G, QD
     Route: 048
     Dates: start: 20100428
  6. SIMVASTATIN. [Concomitant]
     Active Substance: SIMVASTATIN
     Indication: DYSLIPIDAEMIA
     Dosage: 10 MG, UNK
     Route: 048

REACTIONS (2)
  - Drug interaction [Unknown]
  - Acute kidney injury [Recovered/Resolved]

NARRATIVE: CASE EVENT DATE: 20180309
